FAERS Safety Report 18157166 (Version 2)
Quarter: 2025Q1

REPORT INFORMATION
  Report Type: Report from Study
  Country: PT (occurrence: PT)
  Receive Date: 20200817
  Receipt Date: 20250213
  Transmission Date: 20250408
  Serious: Yes (Other)
  Sender: UCB
  Company Number: PT-UCBSA-2020031347

PATIENT
  Age: 70 Year
  Sex: Female

DRUGS (6)
  1. ROTIGOTINE [Suspect]
     Active Substance: ROTIGOTINE
     Indication: On and off phenomenon
  2. ROTIGOTINE [Suspect]
     Active Substance: ROTIGOTINE
     Indication: Off label use
  3. STALEVO [Suspect]
     Active Substance: CARBIDOPA\ENTACAPONE\LEVODOPA
     Indication: Product used for unknown indication
  4. APOMORPHINE [Suspect]
     Active Substance: APOMORPHINE
     Indication: Product used for unknown indication
  5. SINEMET [Suspect]
     Active Substance: CARBIDOPA\LEVODOPA
     Indication: On and off phenomenon
  6. ONGENTYS [Suspect]
     Active Substance: OPICAPONE
     Indication: On and off phenomenon

REACTIONS (23)
  - Dystonia [Unknown]
  - Dementia [Unknown]
  - Hallucination [Unknown]
  - Tremor [Unknown]
  - Bradykinesia [Unknown]
  - Muscle rigidity [Unknown]
  - Gait disturbance [Unknown]
  - Sleep disorder [Unknown]
  - Reduced facial expression [Unknown]
  - Constipation [Unknown]
  - Depression [Unknown]
  - Delusion [Unknown]
  - Fatigue [Unknown]
  - Confusional state [Unknown]
  - Saliva altered [Unknown]
  - Psychotic disorder [Unknown]
  - Dysphonia [Unknown]
  - Freezing phenomenon [Unknown]
  - Pain [Unknown]
  - Anxiety [Unknown]
  - Dysphagia [Unknown]
  - Therapeutic response shortened [Unknown]
  - Off label use [Unknown]
